FAERS Safety Report 6715359-X (Version None)
Quarter: 2010Q2

REPORT INFORMATION
  Report Type: 
  Country: None (occurrence: None)
  Receive Date: 20100507
  Receipt Date: 20100427
  Transmission Date: 20101027
  Serious: Yes (Disabling)
  Sender: FDA-Public Use
  Company Number: US-BAYER-201019144NA

PATIENT
  Age: 59 Year
  Sex: Male
  Weight: 80 kg

DRUGS (3)
  1. NEXAVAR [Suspect]
     Indication: RENAL CELL CARCINOMA
     Dosage: TOTAL DAILY DOSE: 800 MG  UNIT DOSE: 200 MG
     Route: 048
     Dates: start: 20100301, end: 20100401
  2. VICODIN [Concomitant]
     Dosage: 5-500 MG
  3. METAMUCIL-2 [Concomitant]

REACTIONS (5)
  - ABASIA [None]
  - BLISTER [None]
  - DECUBITUS ULCER [None]
  - PAIN IN EXTREMITY [None]
  - SKIN EXFOLIATION [None]
